FAERS Safety Report 9255743 (Version 1)
Quarter: 2013Q2

REPORT INFORMATION
  Report Type: Report from Study
  Country: US (occurrence: US)
  Receive Date: 20130425
  Receipt Date: 20130425
  Transmission Date: 20140414
  Serious: Yes (Death, Hospitalization, Disabling, Other)
  Sender: FDA-Public Use
  Company Number: US-BAYER-2013-003767

PATIENT
  Age: 57 Year
  Sex: Female

DRUGS (6)
  1. NEXAVAR [Suspect]
     Indication: HEPATIC CANCER
     Dosage: 400 MG, BID (2 TABLETS TWICE DAILY)
     Route: 048
     Dates: start: 20121215
  2. NEXAVAR [Suspect]
     Indication: HEPATIC CANCER
     Dosage: 200 MG, BID
     Route: 048
  3. NEXAVAR [Suspect]
     Indication: HEPATIC CANCER
     Dosage: 200 MG AM - 400 MG PM
     Route: 048
  4. NEXAVAR [Suspect]
     Indication: HEPATIC CANCER
     Dosage: 200 MG, BID
     Route: 048
  5. COUMADIN [Concomitant]
  6. WARFARIN [Concomitant]

REACTIONS (13)
  - Death [Fatal]
  - Hospitalisation [None]
  - Haemorrhage [None]
  - Gingival bleeding [None]
  - Cardiac failure [None]
  - Local swelling [None]
  - Abasia [None]
  - Dyspnoea [None]
  - Decreased appetite [Recovering/Resolving]
  - Fatigue [Not Recovered/Not Resolved]
  - Dysphonia [Not Recovered/Not Resolved]
  - Paraesthesia [Not Recovered/Not Resolved]
  - Pruritus [None]
